FAERS Safety Report 24072420 (Version 1)
Quarter: 2024Q3

REPORT INFORMATION
  Report Type: Spontaneous
  Country: IN (occurrence: IN)
  Receive Date: 20240710
  Receipt Date: 20240710
  Transmission Date: 20241016
  Serious: Yes (Hospitalization, Other)
  Sender: MACLEODS
  Company Number: IN-MACLEODS PHARMA-MAC2024048051

PATIENT

DRUGS (7)
  1. PYRAZINAMIDE [Suspect]
     Active Substance: PYRAZINAMIDE
     Indication: Pulmonary tuberculosis
     Route: 065
  2. RIFAMPIN [Suspect]
     Active Substance: RIFAMPIN
     Indication: Pulmonary tuberculosis
     Route: 065
  3. ISONIAZID [Suspect]
     Active Substance: ISONIAZID
     Indication: Pulmonary tuberculosis
     Route: 065
  4. ETHAMBUTOL [Suspect]
     Active Substance: ETHAMBUTOL HYDROCHLORIDE
     Indication: Pulmonary tuberculosis
     Route: 065
  5. SODIUM CHLORIDE [Suspect]
     Active Substance: SODIUM CHLORIDE
     Indication: Hypercalcaemia
     Route: 065
  6. FUROSEMIDE [Suspect]
     Active Substance: FUROSEMIDE
     Indication: Hypercalcaemia
     Route: 065
  7. CALCITONIN [Suspect]
     Active Substance: CALCITONIN
     Indication: Hypercalcaemia
     Route: 058

REACTIONS (2)
  - Immune reconstitution inflammatory syndrome [Recovered/Resolved]
  - Hypercalcaemia [Recovered/Resolved]
